FAERS Safety Report 8804397 (Version 2)
Quarter: 2012Q4

REPORT INFORMATION
  Report Type: 
  Country: US (occurrence: US)
  Receive Date: 20120924
  Receipt Date: 20121012
  Transmission Date: 20130627
  Serious: Yes (Death, Hospitalization)
  Sender: FDA-Public Use
  Company Number: US-B.I. PHARMACEUTICALS,INC./RIDGEFIELD-2012-BP-23132BP

PATIENT
  Age: 79 Year
  Sex: Male

DRUGS (7)
  1. PRADAXA [Suspect]
     Indication: CEREBROVASCULAR ACCIDENT PROPHYLAXIS
     Dosage: 300 mg
     Route: 048
     Dates: end: 201209
  2. PRADAXA [Suspect]
     Indication: ATRIAL FIBRILLATION
  3. HEPARIN [Suspect]
  4. SYNTHROID [Concomitant]
     Indication: HYPOTHYROIDISM
  5. PRILOSEC [Concomitant]
     Indication: GASTROOESOPHAGEAL REFLUX DISEASE
  6. COREG [Concomitant]
     Indication: CARDIAC FAILURE CONGESTIVE
  7. DIGOXIN [Concomitant]

REACTIONS (3)
  - Cerebrovascular accident [Fatal]
  - Nephrolithiasis [Recovered/Resolved]
  - Heparin-induced thrombocytopenia [Unknown]
